FAERS Safety Report 5075823-9 (Version None)
Quarter: 2006Q3

REPORT INFORMATION
  Report Type: 
  Country: None (occurrence: None)
  Receive Date: 20060809
  Receipt Date: 20060803
  Transmission Date: 20061208
  Serious: Yes (Hospitalization)
  Sender: FDA-Public Use
  Company Number: FR-GLAXOSMITHKLINE-B0433403A

PATIENT
  Age: 57 Year
  Sex: Female

DRUGS (2)
  1. CLAVENTIN [Suspect]
     Dosage: 3G TWICE PER DAY
     Route: 042
     Dates: start: 20060707, end: 20060711
  2. IMUREL [Concomitant]
     Route: 065

REACTIONS (8)
  - ALANINE AMINOTRANSFERASE INCREASED [None]
  - ASPARTATE AMINOTRANSFERASE INCREASED [None]
  - BLOOD LACTATE DEHYDROGENASE INCREASED [None]
  - CARDIAC FAILURE CONGESTIVE [None]
  - HEPATOCELLULAR DAMAGE [None]
  - HYPERKALAEMIA [None]
  - PROTHROMBIN LEVEL DECREASED [None]
  - RESPIRATORY DISTRESS [None]
